FAERS Safety Report 5723997-6 (Version None)
Quarter: 2008Q2

REPORT INFORMATION
  Report Type: 
  Country: None (occurrence: None)
  Receive Date: 20080430
  Receipt Date: 20080425
  Transmission Date: 20081010
  Serious: Yes (Other)
  Sender: FDA-Public Use
  Company Number: PHHY2008BR06607

PATIENT

DRUGS (1)
  1. VOLTAREN [Suspect]
     Dosage: UNK, Q12H
     Route: 048
     Dates: start: 20080423, end: 20080424

REACTIONS (6)
  - DENGUE FEVER [None]
  - HEADACHE [None]
  - INFLUENZA [None]
  - NASAL CONGESTION [None]
  - PAIN [None]
  - POOR QUALITY SLEEP [None]
